FAERS Safety Report 4961882-8 (Version None)
Quarter: 2006Q1

REPORT INFORMATION
  Report Type: 
  Country: None (occurrence: None)
  Receive Date: 20060329
  Receipt Date: 20060320
  Transmission Date: 20060701
  Serious: Yes (Other)
  Sender: FDA-Public Use
  Company Number: 143665USA

PATIENT
  Age: 50 Year
  Sex: Female
  Weight: 63.5036 kg

DRUGS (2)
  1. COPAXONE [Suspect]
     Indication: MULTIPLE SCLEROSIS
     Dates: start: 20050713, end: 20050908
  2. VAGIFEM [Concomitant]

REACTIONS (12)
  - AUTOIMMUNE HEPATITIS [None]
  - BIOPSY LIVER ABNORMAL [None]
  - BODY TEMPERATURE INCREASED [None]
  - DRUG TOXICITY [None]
  - FEELING COLD [None]
  - HEPATIC FIBROSIS [None]
  - HEPATIC NECROSIS [None]
  - HEPATOCELLULAR DAMAGE [None]
  - HEPATOTOXICITY [None]
  - SERUM FERRITIN INCREASED [None]
  - TREMOR [None]
  - VENOOCCLUSIVE LIVER DISEASE [None]
